FAERS Safety Report 16072222 (Version 1)
Quarter: 2019Q1

REPORT INFORMATION
  Report Type: Spontaneous
  Country: US (occurrence: US)
  Receive Date: 20190314
  Receipt Date: 20190314
  Transmission Date: 20190418
  Serious: No
  Sender: FDA-Public Use
  Company Number: US-HTU-2018US018024

PATIENT
  Sex: Male

DRUGS (1)
  1. VALCHLOR [Suspect]
     Active Substance: MECHLORETHAMINE
     Indication: MYCOSIS FUNGOIDES
     Dosage: THIN FILM TO THE AFFECTED SKIN, DAILY
     Route: 061
     Dates: start: 20181029

REACTIONS (5)
  - Dry skin [Not Recovered/Not Resolved]
  - Application site reaction [Not Recovered/Not Resolved]
  - Application site haemorrhage [Unknown]
  - Application site irritation [Unknown]
  - Pain of skin [Not Recovered/Not Resolved]
